FAERS Safety Report 15786537 (Version 2)
Quarter: 2019Q1

REPORT INFORMATION
  Report Type: Spontaneous
  Country: CN (occurrence: CN)
  Receive Date: 20190103
  Receipt Date: 20190308
  Transmission Date: 20190417
  Serious: Yes (Death, Other)
  Sender: FDA-Public Use
  Company Number: CN-ASTELLAS-2019US000255

PATIENT
  Age: 65 Year
  Sex: Male

DRUGS (2)
  1. AFATINIB [Concomitant]
     Active Substance: AFATINIB
     Indication: NON-SMALL CELL LUNG CANCER
     Dosage: UNK, UNKNOWN FREQ.
     Route: 065
     Dates: start: 20170228, end: 20170314
  2. ERLOTINIB [Suspect]
     Active Substance: ERLOTINIB
     Indication: NON-SMALL CELL LUNG CANCER
     Dosage: UNK, UNKNOWN FREQ.
     Route: 065
     Dates: start: 201607, end: 201612

REACTIONS (5)
  - Hypoxia [Unknown]
  - Pneumothorax [Unknown]
  - Death [Fatal]
  - Interstitial lung disease [Unknown]
  - Lung infection [Unknown]

NARRATIVE: CASE EVENT DATE: 20170407
